FAERS Safety Report 8860300 (Version 1)
Quarter: 2012Q4

REPORT INFORMATION
  Report Type: 
  Country: US (occurrence: US)
  Receive Date: 20121025
  Receipt Date: 20121025
  Transmission Date: 20130627
  Serious: No
  Sender: FDA-Public Use
  Company Number: US-PFIZER INC-2012262389

PATIENT
  Age: 64 Year
  Sex: Female
  Weight: 62.59 kg

DRUGS (3)
  1. DETROL LA [Suspect]
     Indication: HYPERTONIC BLADDER
     Dosage: 4 mg, 1x/day
     Route: 048
     Dates: end: 2012
  2. DILANTIN [Concomitant]
     Indication: CONVULSION
     Dosage: UNK
  3. PREMARIN [Concomitant]
     Dosage: UNK

REACTIONS (3)
  - Blood glucose increased [Unknown]
  - Blood cholesterol increased [Unknown]
  - Micturition urgency [Unknown]
